FAERS Safety Report 17543109 (Version 6)
Quarter: 2020Q3

REPORT INFORMATION
  Report Type: Spontaneous
  Country: CA (occurrence: CA)
  Receive Date: 20200316
  Receipt Date: 20200924
  Transmission Date: 20201102
  Serious: Yes (Hospitalization, Other)
  Sender: FDA-Public Use
  Company Number: CA-CELLTRION INC.-2018CA020157

PATIENT

DRUGS (20)
  1. INFLECTRA [Suspect]
     Active Substance: INFLIXIMAB-DYYB
     Dosage: 10 MG/KG (1100 MG) EVERY 6 WEEKS
     Route: 042
     Dates: start: 20190926
  2. INFLECTRA [Suspect]
     Active Substance: INFLIXIMAB-DYYB
     Dosage: 10 MG/KG (1100 MG) EVERY 6 WEEKS
     Route: 042
     Dates: start: 20200901
  3. PREDNISONE. [Concomitant]
     Active Substance: PREDNISONE
     Dosage: TAPERING DOSE FOR 3 MONTHS
  4. INFLECTRA [Suspect]
     Active Substance: INFLIXIMAB-DYYB
     Dosage: 10 MG/KG (1100 MG) EVERY 8 WEEKS
     Route: 042
     Dates: start: 20190523
  5. INFLECTRA [Suspect]
     Active Substance: INFLIXIMAB-DYYB
     Dosage: 10 MG/KG (1100 MG) EVERY 6 WEEKS
     Route: 042
     Dates: start: 20191107
  6. INFLECTRA [Suspect]
     Active Substance: INFLIXIMAB-DYYB
     Dosage: 10 MG/KG (1100 MG) EVERY 6 WEEKS
     Route: 042
     Dates: start: 20191107
  7. INFLECTRA [Suspect]
     Active Substance: INFLIXIMAB-DYYB
     Dosage: 10 MG/KG (1100 MG) EVERY 6 WEEKS
     Route: 042
     Dates: start: 20200317
  8. HUMIRA [Concomitant]
     Active Substance: ADALIMUMAB
     Dosage: UNK
  9. INFLECTRA [Suspect]
     Active Substance: INFLIXIMAB-DYYB
     Indication: CROHN^S DISEASE
     Dosage: 500 MG, EVERY 8 WEEKS
     Route: 042
     Dates: start: 20170224, end: 20180109
  10. INFLECTRA [Suspect]
     Active Substance: INFLIXIMAB-DYYB
     Dosage: UNK
     Dates: start: 20180622
  11. INFLECTRA [Suspect]
     Active Substance: INFLIXIMAB-DYYB
     Dosage: 600 MG, EVERY 8 WEEKS
     Route: 042
     Dates: start: 20180306, end: 20180622
  12. INFLECTRA [Suspect]
     Active Substance: INFLIXIMAB-DYYB
     Dosage: 10 MG/KG (1100 MG) EVERY 6 WEEKS
     Route: 042
     Dates: start: 20190926
  13. INFLECTRA [Suspect]
     Active Substance: INFLIXIMAB-DYYB
     Dosage: 10 MG/KG (1100 MG) EVERY 8 WEEKS
     Route: 042
     Dates: start: 20180815, end: 20190523
  14. INFLECTRA [Suspect]
     Active Substance: INFLIXIMAB-DYYB
     Dosage: 10 MG/KG (1100 MG) EVERY 6 WEEKS
     Route: 042
     Dates: start: 20191107
  15. INFLECTRA [Suspect]
     Active Substance: INFLIXIMAB-DYYB
     Dosage: 10 MG/KG (1100 MG) EVERY 6 WEEKS
     Route: 042
     Dates: start: 20200117
  16. INFLECTRA [Suspect]
     Active Substance: INFLIXIMAB-DYYB
     Dosage: 10 MG/KG (1100 MG) EVERY 6 WEEKS
     Route: 042
     Dates: start: 20200422
  17. INFLECTRA [Suspect]
     Active Substance: INFLIXIMAB-DYYB
     Dosage: 10 MG/KG (1100 MG) EVERY 6 WEEKS
     Route: 042
     Dates: start: 20190703
  18. INFLECTRA [Suspect]
     Active Substance: INFLIXIMAB-DYYB
     Dosage: 10 MG/KG (1100 MG) EVERY 6 WEEKS
     Route: 042
     Dates: start: 20190926
  19. INFLECTRA [Suspect]
     Active Substance: INFLIXIMAB-DYYB
     Dosage: 10 MG/KG (1100 MG) EVERY 6 WEEKS
     Route: 042
     Dates: start: 20191212
  20. INFLECTRA [Suspect]
     Active Substance: INFLIXIMAB-DYYB
     Dosage: 10 MG/KG (1100 MG) EVERY 6 WEEKS
     Route: 042
     Dates: start: 20190926

REACTIONS (9)
  - Gallbladder disorder [Unknown]
  - Drug level decreased [Unknown]
  - Cholangitis sclerosing [Unknown]
  - Illness [Not Recovered/Not Resolved]
  - Asthma [Unknown]
  - Injection site haematoma [Recovered/Resolved]
  - Injection site haemorrhage [Recovered/Resolved]
  - Off label use [Unknown]
  - Inappropriate schedule of product administration [Unknown]

NARRATIVE: CASE EVENT DATE: 20200422
